FAERS Safety Report 8438603-X (Version None)
Quarter: 2012Q2

REPORT INFORMATION
  Report Type: 
  Country: None (occurrence: None)
  Receive Date: 20120615
  Receipt Date: 20120612
  Transmission Date: 20120825
  Serious: Yes (Other)
  Sender: FDA-Public Use
  Company Number: US-PFIZER INC-2012143791

PATIENT
  Sex: Female

DRUGS (3)
  1. INDERAL [Suspect]
     Indication: HYPERTENSION
     Dosage: 10 MG, 3X/DAY
  2. CYMBALTA [Suspect]
     Indication: DEPRESSION
     Dosage: 60 MG, IN THE MORNING AND AT SLEEP
  3. GEODON [Suspect]
     Indication: THINKING ABNORMAL
     Dosage: 60 MG, AT SLEEP (HS)

REACTIONS (2)
  - DRUG HYPERSENSITIVITY [None]
  - HEART RATE DECREASED [None]
